FAERS Safety Report 9447998 (Version 1)
Quarter: 2013Q3

REPORT INFORMATION
  Report Type: Spontaneous
  Country: DE (occurrence: DE)
  Receive Date: 20130808
  Receipt Date: 20130808
  Transmission Date: 20140515
  Serious: Yes (Hospitalization)
  Sender: FDA-Public Use
  Company Number: DE-SANOFI-AVENTIS-2013SA078916

PATIENT
  Age: 52 Year
  Sex: Female

DRUGS (3)
  1. ZOLPIDEM [Suspect]
     Indication: INSOMNIA
     Dosage: 2 10 MG TABLETS DAILY
     Route: 065
     Dates: start: 201202
  2. ZOLPIDEM [Suspect]
     Indication: INSOMNIA
     Dosage: 19 10 MG TABLETS
     Route: 065
     Dates: end: 2012
  3. LORAZEPAM [Concomitant]
     Dosage: DOSE: 1-2 MG

REACTIONS (19)
  - Drug dependence [Unknown]
  - Parosmia [Recovering/Resolving]
  - Overdose [Unknown]
  - Decreased appetite [Recovering/Resolving]
  - Weight decreased [Recovering/Resolving]
  - General physical health deterioration [Recovering/Resolving]
  - Nutritional condition abnormal [Recovering/Resolving]
  - Asthenia [Recovering/Resolving]
  - Pallor [Recovering/Resolving]
  - Polydipsia [Unknown]
  - Hyponatraemia [Recovered/Resolved]
  - Hyperkalaemia [Unknown]
  - Depression [Recovered/Resolved]
  - Mood swings [Recovered/Resolved]
  - Suicidal ideation [Recovered/Resolved]
  - Feeling of despair [Recovered/Resolved]
  - Drug withdrawal syndrome [Recovered/Resolved]
  - Drug dependence [Recovered/Resolved]
  - Restlessness [Recovered/Resolved]
